FAERS Safety Report 8846270 (Version 1)
Quarter: 2012Q4

REPORT INFORMATION
  Report Type: 
  Country: FR (occurrence: FR)
  Receive Date: 20121018
  Receipt Date: 20121018
  Transmission Date: 20130627
  Serious: Yes (Other)
  Sender: FDA-Public Use
  Company Number: FR-AMGEN-FRASP2012065308

PATIENT
  Age: 41 Year
  Sex: Male

DRUGS (8)
  1. ENBREL [Suspect]
     Indication: ANKYLOSING SPONDYLITIS
     Dosage: 1 DF, weekly
     Dates: start: 200903, end: 200907
  2. KARDEGIC [Concomitant]
     Dosage: UNK UNK, UNK
  3. COAPROVEL [Concomitant]
     Dosage: UNK UNK, UNK
  4. ZANIDIP [Concomitant]
     Dosage: UNK UNK, UNK
  5. CARTREX [Concomitant]
     Dosage: UNK UNK, UNK
  6. CRESTOR [Concomitant]
     Dosage: UNK UNK, UNK
  7. MOPRAL [Concomitant]
     Dosage: UNK UNK, UNK
  8. STILNOX [Concomitant]
     Dosage: UNK

REACTIONS (1)
  - Somnolence [Recovered/Resolved]
